FAERS Safety Report 12583226 (Version 3)
Quarter: 2016Q4

REPORT INFORMATION
  Report Type: Spontaneous
  Country: DE (occurrence: DE)
  Receive Date: 20160722
  Receipt Date: 20161107
  Transmission Date: 20170207
  Serious: Yes (Life-Threatening, Hospitalization)
  Sender: FDA-Public Use
  Company Number: DE-ROCHE-1800120

PATIENT
  Age: 52 Year
  Sex: Female
  Weight: 93 kg

DRUGS (4)
  1. ANAKINRA [Concomitant]
     Active Substance: ANAKINRA
     Route: 065
     Dates: start: 201502
  2. PREDNISOLON [Concomitant]
     Active Substance: PREDNISOLONE
  3. ROACTEMRA [Suspect]
     Active Substance: TOCILIZUMAB
     Indication: JUVENILE IDIOPATHIC ARTHRITIS
     Route: 058
     Dates: start: 20160702
  4. METHOTREXATE (METHOTREXATE SODIUM) [Concomitant]
     Active Substance: METHOTREXATE SODIUM
     Dosage: 10 TO 15 MG
     Route: 065
     Dates: start: 201604

REACTIONS (6)
  - Cytomegalovirus colitis [Recovering/Resolving]
  - Cardiovascular disorder [Recovering/Resolving]
  - Sepsis [Recovering/Resolving]
  - Urosepsis [Recovering/Resolving]
  - Cardiovascular disorder [Unknown]
  - Febrile convulsion [Unknown]

NARRATIVE: CASE EVENT DATE: 20160703
